FAERS Safety Report 25709507 (Version 2)
Quarter: 2025Q3

REPORT INFORMATION
  Report Type: Spontaneous
  Country: JP (occurrence: JP)
  Receive Date: 20250821
  Receipt Date: 20250916
  Transmission Date: 20251021
  Serious: No
  Sender: AMGEN
  Company Number: JP-AMGEN-JPNSP2025133675

PATIENT

DRUGS (2)
  1. OTEZLA [Suspect]
     Active Substance: APREMILAST
     Indication: Product used for unknown indication
     Dosage: 30 MILLIGRAM, QD
     Route: 048
  2. OTEZLA [Suspect]
     Active Substance: APREMILAST
     Dosage: DOSE OF A HALVED 30 MG TABLET ONCE DAILY
     Route: 048

REACTIONS (1)
  - Off label use [Unknown]
